FAERS Safety Report 5730226-6 (Version None)
Quarter: 2008Q2

REPORT INFORMATION
  Report Type: 
  Country: None (occurrence: None)
  Receive Date: 20080502
  Receipt Date: 20080417
  Transmission Date: 20081010
  Serious: Yes (Hospitalization)
  Sender: FDA-Public Use
  Company Number: S08-FRA-01561-01

PATIENT
  Age: 73 Year
  Sex: Female

DRUGS (12)
  1. CITALOPRAM HYDROBROMIDE [Suspect]
     Indication: DEPRESSION
     Dates: start: 20080205, end: 20080222
  2. NEURONTIN [Suspect]
     Indication: PAIN
     Dosage: 300 MG TID PO
     Route: 048
     Dates: start: 20080124, end: 20080207
  3. NEURONTIN [Suspect]
     Indication: PAIN
     Dosage: 600 MG TID PO
     Route: 048
     Dates: start: 20080208, end: 20080222
  4. PYOSTACINE        (PRISTINAMYCIN) [Suspect]
     Indication: STAPHYLOCOCCAL INFECTION
     Dates: start: 20080214, end: 20080222
  5. FUCIDINE CAP [Concomitant]
  6. LOVENOX [Concomitant]
  7. CLONAZEPAM [Concomitant]
  8. PANTOPRAZOLE SODIUM [Concomitant]
  9. NEBIVOLOL HCL [Concomitant]
  10. TRAMADOL HCL [Concomitant]
  11. KETOPROFEN [Concomitant]
  12. VANCOMYCIN [Concomitant]

REACTIONS (14)
  - ALANINE AMINOTRANSFERASE INCREASED [None]
  - ASPARTATE AMINOTRANSFERASE INCREASED [None]
  - CHOLESTASIS [None]
  - DRUG RASH WITH EOSINOPHILIA AND SYSTEMIC SYMPTOMS [None]
  - GAMMA-GLUTAMYLTRANSFERASE INCREASED [None]
  - HYPERKALAEMIA [None]
  - NEUTROPHIL COUNT INCREASED [None]
  - NOSOCOMIAL INFECTION [None]
  - PRURITUS [None]
  - PYREXIA [None]
  - RASH MACULO-PAPULAR [None]
  - RASH SCARLATINIFORM [None]
  - RENAL FAILURE [None]
  - STAPHYLOCOCCAL INFECTION [None]
